FAERS Safety Report 17139680 (Version 1)
Quarter: 2019Q4

REPORT INFORMATION
  Report Type: Spontaneous
  Country: IN (occurrence: IN)
  Receive Date: 20191211
  Receipt Date: 20191211
  Transmission Date: 20200122
  Serious: Yes (Hospitalization)
  Sender: FDA-Public Use
  Company Number: IN-GLENMARK PHARMACEUTICALS-2019GMK044689

PATIENT

DRUGS (1)
  1. TELMISARTAN. [Suspect]
     Active Substance: TELMISARTAN
     Indication: BLOOD PRESSURE ABNORMAL
     Dosage: 1 DF, QD (ONE TABLET A DAY)
     Route: 048

REACTIONS (2)
  - Drug ineffective [Unknown]
  - Blood pressure inadequately controlled [Recovering/Resolving]

NARRATIVE: CASE EVENT DATE: 20191128
